FAERS Safety Report 16531192 (Version 1)
Quarter: 2019Q3

REPORT INFORMATION
  Report Type: Spontaneous
  Country: US (occurrence: US)
  Receive Date: 20190705
  Receipt Date: 20190705
  Transmission Date: 20191004
  Serious: Yes (Other)
  Sender: FDA-Public Use
  Company Number: US-BAYER-2019-126135

PATIENT
  Age: 22 Year
  Sex: Female

DRUGS (2)
  1. ACETYLSALICYLIC ACID (CARDIO) [Suspect]
     Active Substance: ASPIRIN
     Indication: PERICARDITIS
  2. FUROSEMIDE. [Concomitant]
     Active Substance: FUROSEMIDE
     Route: 042

REACTIONS (5)
  - Off label use [None]
  - Contraindicated product administered [None]
  - Maternal exposure during pregnancy [None]
  - Product use in unapproved indication [None]
  - Pre-eclampsia [None]
